FAERS Safety Report 11092823 (Version 1)
Quarter: 2015Q2

REPORT INFORMATION
  Report Type: Spontaneous
  Country: GB (occurrence: None)
  Receive Date: 20150504
  Receipt Date: 20150504
  Transmission Date: 20150821
  Serious: Yes (Other)
  Sender: FDA-Public Use
  Company Number: 2843041

PATIENT
  Age: 78 Year
  Sex: Female

DRUGS (1)
  1. (ZOLEDRONIC ACID) [Suspect]
     Active Substance: ZOLEDRONIC ACID
     Indication: OSTEOPOROSIS
     Dosage: 5 MG MILLIGRAM (S), UNKNOWN, INTRAVENOUS
     Route: 042
     Dates: start: 20150331

REACTIONS (3)
  - Parophthalmia [None]
  - Asthenia [None]
  - Decreased appetite [None]
